FAERS Safety Report 6404851-3 (Version None)
Quarter: 2009Q4

REPORT INFORMATION
  Report Type: 
  Country: None (occurrence: None)
  Receive Date: 20091018
  Receipt Date: 20091007
  Transmission Date: 20100525
  Serious: Yes (Hospitalization)
  Sender: FDA-Public Use
  Company Number: GB-ABBOTT-08P-167-0447986-00

PATIENT
  Age: 22 Year
  Sex: Female

DRUGS (3)
  1. HUMIRA [Suspect]
     Indication: CROHN'S DISEASE
     Route: 058
     Dates: end: 20080301
  2. HUMIRA [Suspect]
     Route: 058
     Dates: start: 20080301
  3. UNSPECIFIED STEROIDS [Concomitant]
     Indication: CROHN'S DISEASE
     Dosage: DECREASED DOSE

REACTIONS (4)
  - RETINOPATHY [None]
  - THERAPEUTIC RESPONSE DECREASED [None]
  - VISION BLURRED [None]
  - VISUAL FIELD DEFECT [None]
